FAERS Safety Report 4489804-7 (Version None)
Quarter: 2004Q4

REPORT INFORMATION
  Report Type: 
  Country: None (occurrence: None)
  Receive Date: 20041026
  Receipt Date: 20041009
  Transmission Date: 20050328
  Serious: Yes (Other)
  Sender: FDA-Public Use
  Company Number: DSA_25167_2004

PATIENT
  Sex: Male

DRUGS (4)
  1. TEVETEN [Suspect]
     Indication: HYPERTENSION
     Dosage: DF PO
     Route: 048
  2. PANTALOC [Concomitant]
  3. VIOXX [Concomitant]
  4. HYTRIN [Concomitant]

REACTIONS (2)
  - OROPHARYNGEAL SWELLING [None]
  - SWOLLEN TONGUE [None]
